FAERS Safety Report 23868645 (Version 1)
Quarter: 2024Q2

REPORT INFORMATION
  Report Type: Spontaneous
  Country: US (occurrence: US)
  Receive Date: 20240517
  Receipt Date: 20240517
  Transmission Date: 20240716
  Serious: No
  Sender: FDA-Public Use
  Company Number: US-Stemline Therapeutics, Inc.-2024ST001989

PATIENT
  Age: 65 Year
  Sex: Female

DRUGS (3)
  1. ORSERDU [Suspect]
     Active Substance: ELACESTRANT
     Indication: Product used for unknown indication
     Route: 048
     Dates: start: 202306
  2. CARAFATE [Concomitant]
     Active Substance: SUCRALFATE
     Indication: Product used for unknown indication
  3. PROTONIX [Concomitant]
     Active Substance: PANTOPRAZOLE SODIUM
     Indication: Product used for unknown indication

REACTIONS (1)
  - Tremor [Unknown]
